FAERS Safety Report 7277720-7 (Version None)
Quarter: 2011Q1

REPORT INFORMATION
  Report Type: 
  Country: None (occurrence: None)
  Receive Date: 20110207
  Receipt Date: 20110201
  Transmission Date: 20110831
  Serious: Yes (Other)
  Sender: FDA-Public Use
  Company Number: US-AMGEN-USASP2011006149

PATIENT
  Age: 49 Year
  Sex: Male

DRUGS (3)
  1. ENBREL [Suspect]
     Indication: PSORIASIS
     Dosage: 50 MG, QWK
     Dates: start: 20090301, end: 20110101
  2. PREVACID [Concomitant]
  3. LIPITOR [Concomitant]

REACTIONS (1)
  - THYROID CANCER [None]
